FAERS Safety Report 19260417 (Version 1)
Quarter: 2021Q2

REPORT INFORMATION
  Report Type: Spontaneous
  Country: US (occurrence: US)
  Receive Date: 20210514
  Receipt Date: 20210514
  Transmission Date: 20210717
  Serious: No
  Sender: FDA-Public Use
  Company Number: US-KALA PHARAMACEUTICALS-2021KLA00033

PATIENT
  Sex: Female

DRUGS (2)
  1. EYSUVIS [Suspect]
     Active Substance: LOTEPREDNOL ETABONATE
     Indication: DRY EYE
     Dosage: 1 GTT, 3X/DAY IN BOTH EYES FOR 1 WEEK
     Route: 047
  2. UNSPECIFIED ^VARIABLE^ PRODUCT(S) [Concomitant]
     Dosage: UNK

REACTIONS (3)
  - Off label use [Recovered/Resolved]
  - Eye pain [Unknown]
  - Eye irritation [Recovered/Resolved]
